FAERS Safety Report 6581842-3 (Version None)
Quarter: 2010Q1

REPORT INFORMATION
  Report Type: 
  Country: None (occurrence: None)
  Receive Date: 20100212
  Receipt Date: 20100212
  Transmission Date: 20100710
  Serious: Yes (Hospitalization)
  Sender: FDA-Public Use
  Company Number: None

PATIENT
  Age: 54 Year
  Sex: Male

DRUGS (1)
  1. OMEPRAZOLE [Suspect]
     Indication: IMPAIRED GASTRIC EMPTYING
     Dosage: 40 MG AM PO
     Route: 048
     Dates: start: 20090828, end: 20090917

REACTIONS (1)
  - TUBULOINTERSTITIAL NEPHRITIS [None]
